FAERS Safety Report 6954573-5 (Version None)
Quarter: 2010Q3

REPORT INFORMATION
  Report Type: 
  Country: None (occurrence: None)
  Receive Date: 20100829
  Receipt Date: 20100723
  Transmission Date: 20110219
  Serious: No
  Sender: FDA-Public Use
  Company Number: US-ABBOTT-10P-163-0659243-00

PATIENT
  Sex: Female
  Weight: 59.02 kg

DRUGS (6)
  1. NIASPAN [Suspect]
     Indication: ARTERIOSCLEROSIS
     Dosage: AT BED TIME
     Dates: start: 20100701, end: 20100714
  2. NIASPAN [Suspect]
     Indication: CORONARY ARTERY OCCLUSION
  3. HYZAAR [Concomitant]
     Indication: PRODUCT USED FOR UNKNOWN INDICATION
  4. NADOLOL [Concomitant]
     Indication: PRODUCT USED FOR UNKNOWN INDICATION
  5. NORVASC [Concomitant]
     Indication: PRODUCT USED FOR UNKNOWN INDICATION
  6. ASPIRIN [Concomitant]
     Indication: PRODUCT USED FOR UNKNOWN INDICATION
     Dosage: EVERY AM

REACTIONS (1)
  - DIZZINESS [None]
